FAERS Safety Report 4921086-1 (Version None)
Quarter: 2006Q1

REPORT INFORMATION
  Report Type: 
  Country: None (occurrence: None)
  Receive Date: 20060223
  Receipt Date: 20051003
  Transmission Date: 20060701
  Serious: Yes (Hospitalization, Other)
  Sender: FDA-Public Use
  Company Number: US-MERCK-0510USA02628

PATIENT
  Age: 63 Year
  Sex: Female
  Weight: 82 kg

DRUGS (2)
  1. VIOXX [Suspect]
     Indication: ARTHRITIS
     Route: 048
     Dates: start: 20001227, end: 20020702
  2. TYLENOL (CAPLET) [Concomitant]
     Route: 065

REACTIONS (7)
  - ANGINA PECTORIS [None]
  - ARTHROPATHY [None]
  - HYPERTENSION [None]
  - HYPOAESTHESIA [None]
  - ISCHAEMIC STROKE [None]
  - MENTAL DISORDER [None]
  - MYOCARDIAL INFARCTION [None]
